FAERS Safety Report 22632851 (Version 1)
Quarter: 2023Q2

REPORT INFORMATION
  Report Type: Spontaneous
  Country: US (occurrence: None)
  Receive Date: 20230623
  Receipt Date: 20230623
  Transmission Date: 20230721
  Serious: Yes (Disabling)
  Sender: FDA-Public Use
  Company Number: US-ROCHE-3371416

PATIENT
  Age: 70 Year
  Sex: Female

DRUGS (14)
  1. OCREVUS [Suspect]
     Active Substance: OCRELIZUMAB
     Indication: Multiple sclerosis
     Route: 065
     Dates: start: 2018
  2. AUBAGIO [Suspect]
     Active Substance: TERIFLUNOMIDE
     Indication: Multiple sclerosis
     Route: 048
     Dates: start: 20130806
  3. AZELASTINE [Concomitant]
     Active Substance: AZELASTINE
  4. ELIQUIS [Concomitant]
     Active Substance: APIXABAN
  5. VENTOLIN [Concomitant]
     Active Substance: ALBUTEROL SULFATE
  6. SYMBICORT [Concomitant]
     Active Substance: BUDESONIDE\FORMOTEROL FUMARATE DIHYDRATE
  7. PREDNISONE [Concomitant]
     Active Substance: PREDNISONE
  8. FAMOTIDINE [Concomitant]
     Active Substance: FAMOTIDINE
  9. SUCRALFATE [Concomitant]
     Active Substance: SUCRALFATE
  10. LUMIGAN [Concomitant]
     Active Substance: BIMATOPROST
  11. SIMBRINZA [Concomitant]
     Active Substance: BRIMONIDINE TARTRATE\BRINZOLAMIDE
  12. MYRBETRIQ [Concomitant]
     Active Substance: MIRABEGRON
  13. RANOLAZINE [Concomitant]
     Active Substance: RANOLAZINE
  14. DILTIAZEM [Concomitant]
     Active Substance: DILTIAZEM

REACTIONS (11)
  - Interstitial lung disease [Not Recovered/Not Resolved]
  - Dyspnoea [Not Recovered/Not Resolved]
  - Oxygen saturation decreased [Not Recovered/Not Resolved]
  - Bronchitis [Not Recovered/Not Resolved]
  - Thrombosis [Not Recovered/Not Resolved]
  - Pulmonary thrombosis [Not Recovered/Not Resolved]
  - Balance disorder [Not Recovered/Not Resolved]
  - Tremor [Not Recovered/Not Resolved]
  - Aphasia [Not Recovered/Not Resolved]
  - Allergic cough [Unknown]
  - Nausea [Unknown]
